FAERS Safety Report 6245868-1 (Version None)
Quarter: 2009Q2

REPORT INFORMATION
  Report Type: 
  Country: None (occurrence: None)
  Receive Date: 20090626
  Receipt Date: 20090623
  Transmission Date: 20091009
  Serious: Yes (Hospitalization, Other)
  Sender: FDA-Public Use
  Company Number: US-BRISTOL-MYERS SQUIBB COMPANY-14677066

PATIENT
  Age: 55 Year
  Sex: Male

DRUGS (2)
  1. COUMADIN [Suspect]
  2. REMICADE [Suspect]
     Indication: CROHN'S DISEASE
     Dosage: LYOPHILIZED POWDER
     Route: 042
     Dates: end: 20090128

REACTIONS (4)
  - HAEMORRHAGE [None]
  - LUNG ABSCESS [None]
  - PNEUMONIA [None]
  - THROMBOSIS [None]
